FAERS Safety Report 5803357-X (Version None)
Quarter: 2008Q3

REPORT INFORMATION
  Report Type: 
  Country: None (occurrence: None)
  Receive Date: 20080708
  Receipt Date: 20080702
  Transmission Date: 20090109
  Serious: Yes (Death, Other)
  Sender: FDA-Public Use
  Company Number: CN-AVENTIS-200812878EU

PATIENT
  Age: 63 Year
  Sex: Male

DRUGS (4)
  1. ENOXAPARIN SODIUM [Suspect]
     Route: 051
     Dates: start: 20070101, end: 20080513
  2. DIOVANE [Concomitant]
     Indication: HYPERTENSION
     Route: 048
  3. PERDIPINE [Concomitant]
     Indication: HYPERTENSION
     Route: 048
  4. CALCITRIOL [Concomitant]
     Route: 048

REACTIONS (4)
  - DISEASE PROGRESSION [None]
  - GASTROINTESTINAL HAEMORRHAGE [None]
  - HAEMATOCHEZIA [None]
  - MELAENA [None]
